FAERS Safety Report 11661353 (Version 2)
Quarter: 2015Q4

REPORT INFORMATION
  Report Type: Report from Study
  Country: US (occurrence: US)
  Receive Date: 20151026
  Receipt Date: 20151102
  Transmission Date: 20160304
  Serious: Yes (Hospitalization, Other)
  Sender: FDA-Public Use
  Company Number: US-BAXALTA-2015BLT002311

PATIENT
  Sex: Male
  Weight: 81.6 kg

DRUGS (1)
  1. ARALAST NP [Suspect]
     Active Substance: .ALPHA.1-PROTEINASE INHIBITOR HUMAN
     Indication: ALPHA-1 ANTI-TRYPSIN DEFICIENCY
     Dosage: 2694 U, 1X A WEEK
     Route: 042
     Dates: start: 200308

REACTIONS (1)
  - Renal failure [Not Recovered/Not Resolved]
